FAERS Safety Report 4510009-5 (Version None)
Quarter: 2004Q4

REPORT INFORMATION
  Report Type: 
  Country: None (occurrence: None)
  Receive Date: 20041124
  Receipt Date: 20041116
  Transmission Date: 20050328
  Serious: Yes (Other)
  Sender: FDA-Public Use
  Company Number: AU-ABBOTT-04P-008-0280799-00

PATIENT
  Sex: Male

DRUGS (3)
  1. VALPROATE SODIUM [Suspect]
     Indication: DRUG USE FOR UNKNOWN INDICATION
     Route: 048
  2. CLOZAPINE [Suspect]
     Indication: SCHIZOPHRENIA
     Route: 048
     Dates: start: 20040520, end: 20040607
  3. OLANZAPINE [Concomitant]
     Indication: DRUG USE FOR UNKNOWN INDICATION
     Route: 065

REACTIONS (6)
  - EJECTION FRACTION DECREASED [None]
  - MYOCARDITIS [None]
  - PLATELET COUNT DECREASED [None]
  - PYREXIA [None]
  - TACHYCARDIA [None]
  - TROPONIN INCREASED [None]
